FAERS Safety Report 6234296-0 (Version None)
Quarter: 2009Q2

REPORT INFORMATION
  Report Type: 
  Country: None (occurrence: None)
  Receive Date: 20090618
  Receipt Date: 20090608
  Transmission Date: 20091009
  Serious: Yes (Other)
  Sender: FDA-Public Use
  Company Number: US-AMGEN-QUU350459

PATIENT
  Sex: Female

DRUGS (3)
  1. NEULASTA [Suspect]
     Indication: CHEMOTHERAPY
     Route: 065
     Dates: start: 20090605
  2. TAXOTERE [Concomitant]
     Dates: start: 20090604
  3. CYTOXAN [Concomitant]
     Dates: start: 20090604

REACTIONS (4)
  - HYPERSENSITIVITY [None]
  - INJECTION SITE RASH [None]
  - INJECTION SITE REACTION [None]
  - RASH [None]
